FAERS Safety Report 5276989-8 (Version None)
Quarter: 2007Q1

REPORT INFORMATION
  Report Type: 
  Country: None (occurrence: None)
  Receive Date: 20070327
  Receipt Date: 20061215
  Transmission Date: 20070707
  Serious: No
  Sender: FDA-Public Use
  Company Number: US-BRISTOL-MYERS SQUIBB COMPANY-13614110

PATIENT
  Age: 68 Year
  Sex: Female
  Weight: 78 kg

DRUGS (13)
  1. ORENCIA [Suspect]
     Indication: RHEUMATOID ARTHRITIS
     Route: 042
     Dates: start: 20061214, end: 20061214
  2. AVAPRO [Concomitant]
  3. LEVOXYL [Concomitant]
  4. LASIX [Concomitant]
  5. CELEXA [Concomitant]
  6. PROTONIX [Concomitant]
  7. ESTRADIOL [Concomitant]
  8. POTASSIUM SUPPLEMENT [Concomitant]
  9. MULTI-VITAMIN [Concomitant]
  10. CALCIUM [Concomitant]
  11. VITAMIN D [Concomitant]
  12. SOMA [Concomitant]
  13. LORAZEPAM [Concomitant]

REACTIONS (1)
  - URTICARIA [None]
